FAERS Safety Report 25596128 (Version 3)
Quarter: 2025Q3

REPORT INFORMATION
  Report Type: Spontaneous
  Country: US (occurrence: US)
  Receive Date: 20250723
  Receipt Date: 20250814
  Transmission Date: 20251020
  Serious: No
  Sender: AMGEN
  Company Number: US-AMGEN-USASP2025142720

PATIENT
  Age: 60 Year
  Sex: Male

DRUGS (2)
  1. REPATHA [Suspect]
     Active Substance: EVOLOCUMAB
     Indication: Product used for unknown indication
     Dosage: 140 MILLIGRAM, Q2WK (PRODUCT STRENGTH-140MG)
     Route: 058
  2. REPATHA [Suspect]
     Active Substance: EVOLOCUMAB
     Route: 058

REACTIONS (4)
  - Device difficult to use [Unknown]
  - Blood cholesterol increased [Unknown]
  - Therapy interrupted [Unknown]
  - Device use error [Unknown]

NARRATIVE: CASE EVENT DATE: 20240101
